FAERS Safety Report 5035651-7 (Version None)
Quarter: 2006Q2

REPORT INFORMATION
  Report Type: 
  Country: None (occurrence: None)
  Receive Date: 20060526
  Receipt Date: 20060223
  Transmission Date: 20061013
  Serious: Yes (Death)
  Sender: FDA-Public Use
  Company Number: FABR-10102

PATIENT
  Age: 30 Year
  Sex: Male
  Weight: 66 kg

DRUGS (5)
  1. FABRAZYME [Suspect]
     Indication: FABRY'S DISEASE
     Dosage: 1 MG/KG Q2WKS IV
     Route: 042
     Dates: start: 20010706, end: 20020801
  2. ENALAPRIL MALEATE [Concomitant]
  3. ASPIRIN [Concomitant]
  4. CARBAMAZEPINE [Concomitant]
  5. EPOGEN [Concomitant]

REACTIONS (2)
  - CEREBROVASCULAR ACCIDENT [None]
  - HYPERTENSION [None]
